FAERS Safety Report 5820493-2 (Version None)
Quarter: 2008Q3

REPORT INFORMATION
  Report Type: 
  Country: None (occurrence: None)
  Receive Date: 20080724
  Receipt Date: 20070814
  Transmission Date: 20090109
  Serious: No
  Sender: FDA-Public Use
  Company Number: A0670187A

PATIENT
  Age: 84 Year
  Sex: Male

DRUGS (6)
  1. AVANDIA [Suspect]
     Dosage: 2MG PER DAY
     Route: 048
     Dates: start: 20070601
  2. GLUCOTROL [Concomitant]
  3. NORVASC [Concomitant]
  4. SYNTHROID [Concomitant]
  5. ASPIRIN [Concomitant]
  6. PEPCID [Concomitant]

REACTIONS (3)
  - HEADACHE [None]
  - MUSCULOSKELETAL PAIN [None]
  - TENSION [None]
